FAERS Safety Report 8054056-8 (Version None)
Quarter: 2012Q1

REPORT INFORMATION
  Report Type: 
  Country: None (occurrence: None)
  Receive Date: 20120118
  Receipt Date: 20120110
  Transmission Date: 20120608
  Serious: Yes (Disabling, Other)
  Sender: FDA-Public Use
  Company Number: US-ASTRAZENECA-2012SE01927

PATIENT
  Sex: Male

DRUGS (2)
  1. CRESTOR [Suspect]
     Indication: HYPERCHOLESTEROLAEMIA
     Route: 048
  2. CRESTOR [Suspect]
     Indication: LOW DENSITY LIPOPROTEIN ABNORMAL
     Route: 048

REACTIONS (5)
  - PAIN [None]
  - MUSCULAR WEAKNESS [None]
  - ASTHENIA [None]
  - DECREASED ACTIVITY [None]
  - RHABDOMYOLYSIS [None]
